FAERS Safety Report 22358756 (Version 1)
Quarter: 2023Q2

REPORT INFORMATION
  Report Type: Spontaneous
  Country: US (occurrence: None)
  Receive Date: 20230524
  Receipt Date: 20230524
  Transmission Date: 20230721
  Serious: No
  Sender: FDA-Public Use
  Company Number: US-Hikma Pharmaceuticals USA Inc.-US-H14001-23-01158

PATIENT
  Sex: Female

DRUGS (2)
  1. INFUMORPH [Suspect]
     Active Substance: MORPHINE SULFATE
     Indication: Spinal pain
     Route: 037
  2. BUPIVACAINE [Suspect]
     Active Substance: BUPIVACAINE
     Indication: Spinal pain
     Route: 037

REACTIONS (1)
  - Accidental underdose [Unknown]
